FAERS Safety Report 18399066 (Version 1)
Quarter: 2020Q4

REPORT INFORMATION
  Report Type: Spontaneous
  Country: US (occurrence: US)
  Receive Date: 20201019
  Receipt Date: 20201019
  Transmission Date: 20210114
  Serious: Yes (Hospitalization, Other)
  Sender: FDA-Public Use
  Company Number: US-PFIZER INC-2020401660

PATIENT
  Age: 83 Year
  Sex: Female

DRUGS (1)
  1. IBRANCE [Suspect]
     Active Substance: PALBOCICLIB
     Dosage: 75 MG, CYCLIC (DAILY; FOR 21 DAYS, THEN 7 DAYS BREAK)
     Dates: start: 20200911, end: 20200926

REACTIONS (5)
  - Hallucination [Unknown]
  - Confusional state [Unknown]
  - Thrombocytopenia [Unknown]
  - Fall [Unknown]
  - Neutropenia [Unknown]

NARRATIVE: CASE EVENT DATE: 202009
